FAERS Safety Report 24349221 (Version 1)
Quarter: 2024Q3

REPORT INFORMATION
  Report Type: Spontaneous
  Country: PT (occurrence: PT)
  Receive Date: 20240923
  Receipt Date: 20240923
  Transmission Date: 20241017
  Serious: Yes (Death)
  Sender: NOVARTIS
  Company Number: PT-002147023-NVSC2024PT188250

PATIENT
  Age: 58 Year
  Sex: Male

DRUGS (1)
  1. PLUVICTO [Suspect]
     Active Substance: LUTETIUM LU-177 VIPIVOTIDE TETRAXETAN
     Indication: Hormone-refractory prostate cancer
     Dosage: UNK
     Route: 065
     Dates: start: 202311

REACTIONS (8)
  - Lymphadenopathy [Fatal]
  - Hepatic lesion [Fatal]
  - Bone lesion [Fatal]
  - Pain [Fatal]
  - Pyrexia [Fatal]
  - Decreased appetite [Fatal]
  - Eastern Cooperative Oncology Group performance status worsened [Fatal]
  - Tumour marker increased [Fatal]
